FAERS Safety Report 10039963 (Version 2)
Quarter: 2014Q2

REPORT INFORMATION
  Report Type: Spontaneous
  Country: US (occurrence: US)
  Receive Date: 20140326
  Receipt Date: 20140423
  Transmission Date: 20141212
  Serious: Yes (Hospitalization)
  Sender: FDA-Public Use
  Company Number: US-JNJFOC-20140310991

PATIENT
  Sex: Female

DRUGS (2)
  1. TOPAMAX [Suspect]
     Indication: MIGRAINE PROPHYLAXIS
     Dosage: ONE IN AM AND ONE IN PM
     Route: 048
  2. TOPAMAX [Suspect]
     Indication: MIGRAINE PROPHYLAXIS
     Route: 048

REACTIONS (6)
  - Chest pain [Unknown]
  - Palpitations [Unknown]
  - Chest discomfort [Unknown]
  - Treatment noncompliance [Unknown]
  - Drug dose omission [Not Recovered/Not Resolved]
  - Dyspnoea [Unknown]
